FAERS Safety Report 14492996 (Version 1)
Quarter: 2018Q1

REPORT INFORMATION
  Report Type: Spontaneous
  Country: US (occurrence: US)
  Receive Date: 20180205
  Receipt Date: 20180205
  Transmission Date: 20180509
  Serious: Yes (Other)
  Sender: FDA-Public Use
  Company Number: None

PATIENT
  Age: 49 Year
  Sex: Female

DRUGS (1)
  1. WARFARIN [Suspect]
     Active Substance: WARFARIN

REACTIONS (8)
  - Blood creatinine increased [None]
  - Haematocrit decreased [None]
  - Haemoglobin decreased [None]
  - International normalised ratio increased [None]
  - Blood urea increased [None]
  - Sepsis [None]
  - Graft infection [None]
  - Rash [None]
